FAERS Safety Report 4471509-X (Version None)
Quarter: 2004Q4

REPORT INFORMATION
  Report Type: 
  Country: None (occurrence: None)
  Receive Date: 20041008
  Receipt Date: 20041008
  Transmission Date: 20050328
  Serious: Yes (Death)
  Sender: FDA-Public Use
  Company Number: None

PATIENT
  Age: 35 Year
  Sex: Male
  Weight: 98.4306 kg

DRUGS (4)
  1. IRESSA [Suspect]
     Indication: NON-SMALL CELL LUNG CANCER
     Dosage: 250 MG QD ORAL
     Route: 048
     Dates: start: 20040709, end: 20040923
  2. CELECOXIB 200 MG [Suspect]
     Indication: NON-SMALL CELL LUNG CANCER
     Dosage: 200 MG BID ORAL
     Route: 048
     Dates: start: 20040709, end: 20040923
  3. VICODIN [Concomitant]
  4. COMBIVENT [Concomitant]

REACTIONS (1)
  - DYSPNOEA [None]
